FAERS Safety Report 9341324 (Version 2)
Quarter: 2013Q3

REPORT INFORMATION
  Report Type: Report from Study
  Country: GB (occurrence: GB)
  Receive Date: 20130611
  Receipt Date: 20130702
  Transmission Date: 20140515
  Serious: Yes (Hospitalization)
  Sender: FDA-Public Use
  Company Number: GB-ROCHE-1233594

PATIENT
  Age: 88 Year
  Sex: Female

DRUGS (4)
  1. RANIBIZUMAB [Suspect]
     Indication: PRODUCT USED FOR UNKNOWN INDICATION
     Route: 050
     Dates: start: 20090514
  2. RANIBIZUMAB [Suspect]
     Route: 050
     Dates: start: 20090520
  3. RANIBIZUMAB [Suspect]
     Route: 050
     Dates: start: 20121128
  4. RANIBIZUMAB [Suspect]
     Route: 050
     Dates: start: 20130411

REACTIONS (6)
  - Mobility decreased [Recovering/Resolving]
  - Inappropriate schedule of drug administration [Unknown]
  - Glaucoma [Unknown]
  - Eye pain [Unknown]
  - Visual acuity reduced [Unknown]
  - Ocular discomfort [Unknown]
